FAERS Safety Report 11835474 (Version 1)
Quarter: 2015Q4

REPORT INFORMATION
  Report Type: Spontaneous
  Country: US (occurrence: None)
  Receive Date: 20151214
  Receipt Date: 20151214
  Transmission Date: 20160305
  Serious: Yes (Other)
  Sender: FDA-Public Use
  Company Number: None

PATIENT
  Age: 64 Year
  Sex: Female
  Weight: 65.77 kg

DRUGS (3)
  1. VYVANSE [Concomitant]
     Active Substance: LISDEXAMFETAMINE DIMESYLATE
  2. GENERIC DULOXETINE CITRON PHARMA LLC 60M G [Suspect]
     Active Substance: DULOXETINE
     Indication: MAJOR DEPRESSION
     Dosage: 1 PILL TWICE DAILY
     Route: 048
     Dates: start: 20151202, end: 20151211
  3. B COMPLEX VITAMIN [Concomitant]

REACTIONS (6)
  - Drug withdrawal syndrome [None]
  - Product substitution issue [None]
  - Tinnitus [None]
  - Depression [None]
  - Drug ineffective [None]
  - Paraesthesia [None]

NARRATIVE: CASE EVENT DATE: 20151211
